FAERS Safety Report 10607028 (Version 1)
Quarter: 2014Q4

REPORT INFORMATION
  Report Type: Spontaneous
  Country: US (occurrence: None)
  Receive Date: 20141124
  Receipt Date: 20141124
  Transmission Date: 20150529
  Serious: Yes (Hospitalization)
  Sender: FDA-Public Use
  Company Number: None

PATIENT
  Age: 55 Year
  Sex: Male
  Weight: 83.5 kg

DRUGS (1)
  1. VALPROATE SODIUM. [Suspect]
     Active Substance: VALPROATE SODIUM
     Route: 042
     Dates: start: 20140821, end: 20140825

REACTIONS (4)
  - Acute psychosis [None]
  - Drug level below therapeutic [None]
  - Drug eruption [None]
  - Diarrhoea [None]

NARRATIVE: CASE EVENT DATE: 20140825
